FAERS Safety Report 25431079 (Version 1)
Quarter: 2025Q2

REPORT INFORMATION
  Report Type: Spontaneous
  Country: US (occurrence: US)
  Receive Date: 20250612
  Receipt Date: 20250612
  Transmission Date: 20250717
  Serious: No
  Sender: SANOFI AVENTIS
  Company Number: US-SA-2025SA166320

PATIENT
  Sex: Female

DRUGS (9)
  1. DUPIXENT [Suspect]
     Active Substance: DUPILUMAB
     Indication: Dermatitis atopic
     Dosage: 300 MG, QOW
     Route: 058
  2. DUPIXENT [Suspect]
     Active Substance: DUPILUMAB
     Indication: Urticaria pigmentosa
  3. CHOLESTYRAMINE [Concomitant]
     Active Substance: CHOLESTYRAMINE
  4. ONDANSETRON [Concomitant]
     Active Substance: ONDANSETRON
  5. VALACYCLOVIR HYDROCHLORIDE [Concomitant]
     Active Substance: VALACYCLOVIR HYDROCHLORIDE
  6. XYZAL ALLERGY 24HR [Concomitant]
     Active Substance: LEVOCETIRIZINE DIHYDROCHLORIDE
  7. DOXEPIN [Concomitant]
     Active Substance: DOXEPIN
  8. LORAZEPAM [Concomitant]
     Active Substance: LORAZEPAM
  9. MONTELUKAST [Concomitant]
     Active Substance: MONTELUKAST

REACTIONS (8)
  - COVID-19 [Unknown]
  - Cough [Unknown]
  - Abdominal discomfort [Unknown]
  - Headache [Unknown]
  - Muscle spasms [Unknown]
  - Rash [Unknown]
  - Injection site pain [Unknown]
  - Off label use [Unknown]
